FAERS Safety Report 6253869-2 (Version None)
Quarter: 2009Q3

REPORT INFORMATION
  Report Type: 
  Country: None (occurrence: None)
  Receive Date: 20090702
  Receipt Date: 20090625
  Transmission Date: 20100115
  Serious: Yes (Other)
  Sender: FDA-Public Use
  Company Number: JP-BAYER-200813092BYL

PATIENT
  Age: 67 Year
  Sex: Male
  Weight: 68 kg

DRUGS (15)
  1. NEXAVAR [Suspect]
     Indication: RENAL CELL CARCINOMA STAGE IV
     Dosage: TOTAL DAILY DOSE: 800 MG  UNIT DOSE: 200 MG
     Route: 048
     Dates: start: 20080616
  2. NEXAVAR [Suspect]
     Dosage: UNIT DOSE: 200 MG
     Route: 048
     Dates: start: 20080714, end: 20080720
  3. NEXAVAR [Suspect]
     Dosage: UNIT DOSE: 200 MG
     Route: 048
     Dates: start: 20080903, end: 20081027
  4. NEXAVAR [Suspect]
     Dosage: UNIT DOSE: 200 MG
     Route: 048
     Dates: start: 20090410, end: 20090604
  5. NEXAVAR [Suspect]
     Dosage: UNIT DOSE: 200 MG
     Route: 048
     Dates: start: 20090605
  6. NEXAVAR [Suspect]
     Dosage: UNIT DOSE: 200 MG
     Route: 048
     Dates: start: 20081028, end: 20081110
  7. TAGAMET [Concomitant]
     Route: 048
     Dates: start: 20031201
  8. CHOLEBRINE [Concomitant]
     Route: 048
     Dates: start: 20040601
  9. PAXIL [Concomitant]
     Route: 048
     Dates: start: 20080813
  10. PAXIL [Concomitant]
     Route: 048
     Dates: start: 20080806, end: 20080812
  11. SUTENT [Concomitant]
     Route: 048
  12. MAGLAX [Concomitant]
     Dosage: UNIT DOSE: 250 MG
     Route: 048
     Dates: start: 20090410
  13. MUCOSTA [Concomitant]
     Dosage: UNIT DOSE: 100 MG
     Route: 048
     Dates: start: 20090410
  14. SENEVACUL [Concomitant]
     Dosage: UNIT DOSE: 12 MG
     Route: 048
     Dates: start: 20090410
  15. MOBIC [Concomitant]
     Dosage: UNIT DOSE: 10 MG
     Route: 048
     Dates: start: 20090410

REACTIONS (7)
  - DECREASED APPETITE [None]
  - DYSPHONIA [None]
  - HEPATIC FUNCTION ABNORMAL [None]
  - HYPERAMYLASAEMIA [None]
  - HYPERTENSION [None]
  - HYPOTHYROIDISM [None]
  - WEIGHT DECREASED [None]
